FAERS Safety Report 5860814-8 (Version None)
Quarter: 2008Q3

REPORT INFORMATION
  Report Type: 
  Country: None (occurrence: None)
  Receive Date: 20080827
  Receipt Date: 20071129
  Transmission Date: 20090109
  Serious: No
  Sender: FDA-Public Use
  Company Number: US-ABBOTT-07P-163-0426825-00

PATIENT
  Sex: Male
  Weight: 105 kg

DRUGS (9)
  1. NIASPAN [Suspect]
     Indication: HIGH DENSITY LIPOPROTEIN DECREASED
     Route: 048
     Dates: start: 20071003, end: 20071004
  2. NIASPAN [Suspect]
     Route: 048
     Dates: start: 20071005
  3. NIASPAN [Suspect]
     Route: 048
  4. ROSUVASTATIN [Concomitant]
     Indication: LOW DENSITY LIPOPROTEIN
     Route: 048
  5. ACETYLSALICYLIC ACID SRT [Concomitant]
     Indication: DRUG USE FOR UNKNOWN INDICATION
     Route: 048
  6. VITAMIN TAB [Concomitant]
     Indication: DRUG USE FOR UNKNOWN INDICATION
     Route: 048
  7. ASCORBIC ACID [Concomitant]
     Indication: DRUG USE FOR UNKNOWN INDICATION
     Route: 048
  8. ERGOCALCIFEROL [Concomitant]
     Indication: DRUG USE FOR UNKNOWN INDICATION
     Route: 048
  9. UBIDECARENONE [Concomitant]
     Indication: DRUG USE FOR UNKNOWN INDICATION
     Route: 048

REACTIONS (2)
  - FLUSHING [None]
  - HIGH DENSITY LIPOPROTEIN DECREASED [None]
